FAERS Safety Report 7438957-7 (Version None)
Quarter: 2011Q2

REPORT INFORMATION
  Report Type: 
  Country: None (occurrence: None)
  Receive Date: 20110426
  Receipt Date: 20110415
  Transmission Date: 20111010
  Serious: Yes (Hospitalization)
  Sender: FDA-Public Use
  Company Number: NL-BRISTOL-MYERS SQUIBB COMPANY-15679608

PATIENT
  Age: 43 Year
  Sex: Female
  Weight: 59 kg

DRUGS (9)
  1. CLEMASTINE FUMARATE [Suspect]
     Indication: RASH
     Dates: start: 20110313
  2. REYATAZ [Suspect]
     Indication: HIV INFECTION
     Dates: start: 20110314
  3. EMTRICITABINE AND TENOFOVIR DISOPROXIL FUMARATE [Suspect]
     Indication: HIV INFECTION
     Dates: start: 20110314
  4. ZUCLOPENTHIXOL [Concomitant]
  5. RITONAVIR [Suspect]
     Indication: HIV INFECTION
     Dates: start: 20110314
  6. VALPROIC ACID [Suspect]
     Indication: BIPOLAR DISORDER
     Dates: start: 20110214
  7. CALCIUM CARBONATE [Concomitant]
  8. OXAZEPAM [Concomitant]
  9. TEMAZEPAM [Concomitant]

REACTIONS (1)
  - DRUG RASH WITH EOSINOPHILIA AND SYSTEMIC SYMPTOMS [None]
